FAERS Safety Report 22242570 (Version 1)
Quarter: 2023Q2

REPORT INFORMATION
  Report Type: Spontaneous
  Country: US (occurrence: None)
  Receive Date: 20230421
  Receipt Date: 20230421
  Transmission Date: 20230721
  Serious: No
  Sender: FDA-Public Use
  Company Number: None

PATIENT
  Age: 23 Year
  Sex: Male
  Weight: 82.8 kg

DRUGS (3)
  1. HUMIRA [Suspect]
     Active Substance: ADALIMUMAB
     Dosage: OTHER FREQUENCY : EVERY WEEK;?
     Route: 058
     Dates: start: 20221228
  2. BENZOYL PEROXIDE FORTE HC EXTERNAL LOTION7.5-1% [Concomitant]
  3. DOXYCYCLINE HYCLATE [Concomitant]
     Active Substance: DOXYCYCLINE HYCLATE

REACTIONS (2)
  - Injection site pain [None]
  - Muscle spasms [None]

NARRATIVE: CASE EVENT DATE: 20230403
